FAERS Safety Report 7296996-3 (Version None)
Quarter: 2011Q1

REPORT INFORMATION
  Report Type: 
  Country: None (occurrence: None)
  Receive Date: 20110216
  Receipt Date: 20100928
  Transmission Date: 20110831
  Serious: Yes (Other)
  Sender: FDA-Public Use
  Company Number: US-JNJCH-2011003934

PATIENT

DRUGS (1)
  1. DIPHENHYDRAMINE [Suspect]
     Indication: ACCIDENTAL EXPOSURE
     Dosage: TEXT:0.92 MG/KG
     Route: 048

REACTIONS (2)
  - HALLUCINATION [None]
  - ACCIDENTAL DRUG INTAKE BY CHILD [None]
